FAERS Safety Report 25990738 (Version 1)
Quarter: 2025Q4

REPORT INFORMATION
  Report Type: Report from Study
  Country: TW (occurrence: TW)
  Receive Date: 20251103
  Receipt Date: 20251103
  Transmission Date: 20260118
  Serious: Yes (Other)
  Sender: JOHNSON AND JOHNSON
  Company Number: TW-JNJFOC-20251039818

PATIENT
  Age: 32 Year
  Sex: Male
  Weight: 65 kg

DRUGS (1)
  1. SIMPONI [Suspect]
     Active Substance: GOLIMUMAB
     Indication: Ankylosing spondylitis
     Dosage: LAST ADMINISTRATION DATE: 02-OCT-2025
     Route: 058
     Dates: start: 20220224, end: 202510

REACTIONS (1)
  - Malignant urinary tract neoplasm [Not Recovered/Not Resolved]

NARRATIVE: CASE EVENT DATE: 20251020
